FAERS Safety Report 4680147-5 (Version None)
Quarter: 2005Q2

REPORT INFORMATION
  Report Type: 
  Country: None (occurrence: None)
  Receive Date: 20050531
  Receipt Date: 20050517
  Transmission Date: 20051028
  Serious: Yes (Hospitalization, Other)
  Sender: FDA-Public Use
  Company Number: HQWYE784919MAY05

PATIENT
  Age: 38 Year
  Sex: Male

DRUGS (1)
  1. EFFEXOR [Suspect]
     Indication: BIPOLAR DISORDER
     Dosage: 75 MG 1X PER 1 DAY ORAL
     Route: 048

REACTIONS (7)
  - ABNORMAL BEHAVIOUR [None]
  - AGGRESSION [None]
  - ANGER [None]
  - BIPOLAR I DISORDER [None]
  - EUPHORIC MOOD [None]
  - LOGORRHOEA [None]
  - SELF ESTEEM INFLATED [None]
